FAERS Safety Report 6836303-0 (Version None)
Quarter: 2010Q3

REPORT INFORMATION
  Report Type: 
  Country: None (occurrence: None)
  Receive Date: 20100713
  Receipt Date: 20100702
  Transmission Date: 20110219
  Serious: Yes (Other)
  Sender: FDA-Public Use
  Company Number: US-PFIZER INC-2010058061

PATIENT
  Sex: Male
  Weight: 20 kg

DRUGS (10)
  1. SOMATROPIN [Suspect]
     Indication: GROWTH RETARDATION
     Dosage: 0.9 MG, 1X/DAY
     Route: 058
     Dates: start: 20090520, end: 20100415
  2. SOMATROPIN [Suspect]
     Dosage: UNK
     Route: 058
     Dates: start: 20100603
  3. FOSAMAX [Concomitant]
     Dosage: UNK
  4. ARGININE [Concomitant]
     Dosage: UNK
  5. VITAMIN D [Concomitant]
     Dosage: UNK
  6. DEFLAZACORT [Concomitant]
     Dosage: UNK
     Dates: start: 20070201
  7. MONTELUKAST SODIUM [Concomitant]
     Dosage: UNK
  8. LANSOPRAZOLE [Concomitant]
     Dosage: UNK
  9. LISINOPRIL [Concomitant]
     Dosage: UNK
  10. RITALIN [Concomitant]
     Dosage: UNK

REACTIONS (1)
  - NEUROMYOPATHY [None]
